FAERS Safety Report 18810410 (Version 3)
Quarter: 2021Q2

REPORT INFORMATION
  Report Type: Report from Study
  Country: ES (occurrence: ES)
  Receive Date: 20210129
  Receipt Date: 20210510
  Transmission Date: 20210717
  Serious: Yes (Death, Other)
  Sender: FDA-Public Use
  Company Number: ES-ROCHE-2755665

PATIENT
  Age: 67 Year
  Sex: Female
  Weight: 45.4 kg

DRUGS (10)
  1. ATEZOLIZUMAB. [Suspect]
     Active Substance: ATEZOLIZUMAB
     Indication: CERVIX CARCINOMA
     Dosage: LAST DOSE RECEIVED ON 26/NOV/2020
     Route: 041
     Dates: start: 20201105
  2. TAXOL [Suspect]
     Active Substance: PACLITAXEL
     Indication: CERVIX CARCINOMA
     Dosage: LAST DOSE 26/NOV/2020
     Route: 042
     Dates: start: 20201105
  3. AMOXICILINA + CLAVULANICO [Concomitant]
     Active Substance: AMOXICILLIN\CLAVULANIC ACID
     Indication: URINARY TRACT INFECTION
     Dosage: 500 MG/125 MG
     Route: 048
     Dates: start: 20201229, end: 20210109
  4. AMOXICILLIN. [Concomitant]
     Active Substance: AMOXICILLIN
     Indication: URINARY TRACT INFECTION
     Route: 048
     Dates: start: 20210109, end: 20210115
  5. OMEPRAZOLE. [Concomitant]
     Active Substance: OMEPRAZOLE
     Dosage: GASTRIC PROTECTOR
     Route: 048
     Dates: start: 20201104
  6. BEVACIZUMAB. [Suspect]
     Active Substance: BEVACIZUMAB
     Indication: CERVIX CARCINOMA
     Dosage: LAST DOSE 26/NOV/2020
     Route: 042
     Dates: start: 20201105
  7. CISPLATIN. [Suspect]
     Active Substance: CISPLATIN
     Indication: CERVIX CARCINOMA
     Dosage: LAST DOSE 26/NOV/2020
     Route: 042
     Dates: start: 20201105
  8. NAPROXENO [Concomitant]
     Active Substance: NAPROXEN
     Indication: PAIN
     Route: 048
     Dates: start: 20201007, end: 20210109
  9. DEXKETOPROFENO [Concomitant]
     Active Substance: DEXKETOPROFEN
     Indication: PAIN
     Route: 048
     Dates: start: 20210109
  10. EUTIROX [Concomitant]
     Active Substance: LEVOTHYROXINE SODIUM
     Indication: HYPOTHYROIDISM
     Route: 048
     Dates: start: 20201211

REACTIONS (1)
  - Female genital tract fistula [Not Recovered/Not Resolved]

NARRATIVE: CASE EVENT DATE: 20210120
